FAERS Safety Report 19093101 (Version 12)
Quarter: 2024Q4

REPORT INFORMATION
  Report Type: Report from Study
  Country: CA (occurrence: CA)
  Receive Date: 20210405
  Receipt Date: 20241121
  Transmission Date: 20250115
  Serious: Yes (Hospitalization, Other)
  Sender: TAKEDA
  Company Number: CA-SHIRE-CA201922159

PATIENT
  Age: 34 Year
  Sex: Male
  Weight: 75 kg

DRUGS (22)
  1. TEDUGLUTIDE [Suspect]
     Active Substance: TEDUGLUTIDE
     Indication: Short-bowel syndrome
     Dosage: 3.89 MILLIGRAM, QD
     Dates: start: 20190624
  2. TEDUGLUTIDE [Suspect]
     Active Substance: TEDUGLUTIDE
     Dosage: 2 MILLIGRAM, QD
  3. TEDUGLUTIDE [Suspect]
     Active Substance: TEDUGLUTIDE
     Dosage: 3.89 MILLIGRAM, QD
  4. TEDUGLUTIDE [Suspect]
     Active Substance: TEDUGLUTIDE
     Dosage: 2 MILLIGRAM, QD
  5. TEDUGLUTIDE [Suspect]
     Active Substance: TEDUGLUTIDE
     Dosage: UNK UNK, QD
  6. TEDUGLUTIDE [Suspect]
     Active Substance: TEDUGLUTIDE
     Dosage: 2 MILLIGRAM, QD
  7. TPN [Concomitant]
     Active Substance: AMINO ACIDS\DEXTROSE\ELECTROLYTES NOS\SOYBEAN OIL
     Indication: Product used for unknown indication
     Dosage: UNK UNK, QD
     Dates: start: 201608
  8. TPN [Concomitant]
     Active Substance: AMINO ACIDS\DEXTROSE\ELECTROLYTES NOS\SOYBEAN OIL
     Dosage: 1750 MILLILITER
     Dates: start: 20210324
  9. TPN [Concomitant]
     Active Substance: AMINO ACIDS\DEXTROSE\ELECTROLYTES NOS\SOYBEAN OIL
     Dosage: 1000 MILLILITER
  10. TPN [Concomitant]
     Active Substance: AMINO ACIDS\DEXTROSE\ELECTROLYTES NOS\SOYBEAN OIL
     Dosage: 2500 MILLILITER
  11. LOPERAMIDE [Concomitant]
     Active Substance: LOPERAMIDE
     Indication: Product used for unknown indication
     Dosage: UNK
  12. LOPERAMIDE [Concomitant]
     Active Substance: LOPERAMIDE
     Dosage: 2 MILLIGRAM, Q6HR
  13. LOMOTIL [Concomitant]
     Active Substance: ATROPINE SULFATE\DIPHENOXYLATE HYDROCHLORIDE
     Indication: Product used for unknown indication
     Dosage: 0.5 MILLIGRAM, Q6HR
  14. LOMOTIL [Concomitant]
     Active Substance: ATROPINE SULFATE\DIPHENOXYLATE HYDROCHLORIDE
     Dosage: 0.25 MILLIGRAM, Q6HR
  15. PANTOPRAZOLE [Concomitant]
     Active Substance: PANTOPRAZOLE
     Indication: Abdominal pain
     Dosage: UNK
  16. Replavite [Concomitant]
     Dosage: UNK
  17. VITAMIN D [Concomitant]
     Active Substance: VITAMIN D NOS
     Dosage: UNK
  18. MYLAN CINACALCET [Concomitant]
     Dosage: UNK
  19. KCL [Concomitant]
     Active Substance: POTASSIUM CHLORIDE
     Dosage: 40 MILLILITER, QD
  20. SODIUM CHLORIDE [Concomitant]
     Active Substance: SODIUM CHLORIDE
     Dosage: 1000 MILLILITER, QD
  21. IMODIUM [Concomitant]
     Active Substance: LOPERAMIDE HYDROCHLORIDE
     Dosage: UNK
  22. CALCIUM [Concomitant]
     Active Substance: CALCIUM

REACTIONS (30)
  - Infection [Recovered/Resolved]
  - Faecal volume increased [Unknown]
  - Dehydration [Recovered/Resolved]
  - Hepatic steatosis [Unknown]
  - Thirst [Unknown]
  - Localised oedema [Unknown]
  - Vascular device infection [Unknown]
  - Stoma site haemorrhage [Recovered/Resolved]
  - Cholecystitis [Unknown]
  - Pancreatitis [Unknown]
  - Cholelithiasis [Unknown]
  - Abdominal pain upper [Recovered/Resolved]
  - Decreased appetite [Unknown]
  - Weight increased [Unknown]
  - Stoma site discomfort [Not Recovered/Not Resolved]
  - Anorectal discomfort [Unknown]
  - Mucous stools [Unknown]
  - Faeces hard [Unknown]
  - Energy increased [Unknown]
  - Dry mouth [Recovered/Resolved]
  - Nervousness [Recovered/Resolved]
  - Drug ineffective [Unknown]
  - Muscle spasms [Unknown]
  - Blood iron decreased [Unknown]
  - Gastrointestinal stoma output abnormal [Recovered/Resolved]
  - Blood creatinine increased [Recovered/Resolved]
  - Blood parathyroid hormone increased [Unknown]
  - Dysphonia [Unknown]
  - Blood potassium increased [Unknown]
  - Heart rate increased [Unknown]

NARRATIVE: CASE EVENT DATE: 20190710
